FAERS Safety Report 5652210-3 (Version None)
Quarter: 2008Q1

REPORT INFORMATION
  Report Type: 
  Country: None (occurrence: None)
  Receive Date: 20080304
  Receipt Date: 20080229
  Transmission Date: 20080703
  Serious: Yes (Hospitalization)
  Sender: FDA-Public Use
  Company Number: 6039199

PATIENT
  Age: 81 Year
  Sex: Female

DRUGS (7)
  1. BISOPROLOL FUMARATE [Suspect]
     Indication: DRUG USE FOR UNKNOWN INDICATION
     Dosage: ORAL
     Route: 048
  2. BISOPROLOL FUMARATE [Suspect]
     Indication: VENTRICULAR FIBRILLATION
     Dosage: ORAL
     Route: 048
  3. ASPENON (APRINDINE HYDROCHLORIDE) [Suspect]
     Indication: DRUG USE FOR UNKNOWN INDICATION
     Dosage: ORAL
     Route: 048
  4. WARFARIN SODIUM [Suspect]
     Indication: DRUG USE FOR UNKNOWN INDICATION
     Dosage: ORAL
     Route: 048
  5. ARICEPT [Suspect]
     Indication: DRUG USE FOR UNKNOWN INDICATION
     Dosage: ORAL
     Route: 048
  6. FLUCONAZOLE [Concomitant]
  7. OTHER AGENTS RELATING TO BLOOD AND BODY FLUIDES [Concomitant]

REACTIONS (6)
  - AGRANULOCYTOSIS [None]
  - APTYALISM [None]
  - NEUTROPHIL PERCENTAGE DECREASED [None]
  - ORAL CANDIDIASIS [None]
  - PYREXIA [None]
  - WHITE BLOOD CELL COUNT DECREASED [None]
